FAERS Safety Report 14572434 (Version 7)
Quarter: 2018Q4

REPORT INFORMATION
  Report Type: Spontaneous
  Country: US (occurrence: US)
  Receive Date: 20180226
  Receipt Date: 20181207
  Transmission Date: 20190204
  Serious: Yes (Other)
  Sender: FDA-Public Use
  Company Number: US-PFIZER INC-2018077378

PATIENT
  Age: 58 Year
  Sex: Female

DRUGS (2)
  1. IBRANCE [Suspect]
     Active Substance: PALBOCICLIB
     Indication: BREAST CANCER FEMALE
     Dosage: 125 MG, DAILY
     Route: 048
     Dates: start: 201801
  2. IBRANCE [Suspect]
     Active Substance: PALBOCICLIB
     Dosage: 100 MG, 1X/DAY
     Route: 048
     Dates: start: 20181110

REACTIONS (10)
  - Asthenia [Unknown]
  - Fatigue [Unknown]
  - Feeling hot [Unknown]
  - Alopecia [Not Recovered/Not Resolved]
  - White blood cell count decreased [Unknown]
  - Tongue blistering [Unknown]
  - Lip dry [Unknown]
  - Glossodynia [Unknown]
  - Pain [Unknown]
  - Rash erythematous [Unknown]

NARRATIVE: CASE EVENT DATE: 2018
